FAERS Safety Report 4884092-1 (Version None)
Quarter: 2006Q1

REPORT INFORMATION
  Report Type: 
  Country: None (occurrence: None)
  Receive Date: 20060118
  Receipt Date: 20050913
  Transmission Date: 20060701
  Serious: Yes (Hospitalization)
  Sender: FDA-Public Use
  Company Number: GB-MERCK-0509GBR00106

PATIENT
  Age: 69 Year
  Sex: Male
  Weight: 97 kg

DRUGS (3)
  1. VIOXX [Suspect]
     Indication: ARTHRALGIA
     Route: 048
     Dates: start: 20030722, end: 20041004
  2. AMLODIPINE BESYLATE [Concomitant]
     Indication: HYPERTENSION
     Route: 048
     Dates: start: 20010105
  3. VIOXX [Suspect]
     Route: 048
     Dates: start: 20020614, end: 20030721

REACTIONS (3)
  - ACUTE CORONARY SYNDROME [None]
  - CREPITATIONS [None]
  - DILATATION VENTRICULAR [None]
